FAERS Safety Report 22123559 (Version 1)
Quarter: 2023Q1

REPORT INFORMATION
  Report Type: Report from Study
  Country: US (occurrence: US)
  Receive Date: 20230322
  Receipt Date: 20230322
  Transmission Date: 20230418
  Serious: Yes (Other)
  Sender: FDA-Public Use
  Company Number: US-SUN PHARMACEUTICAL INDUSTRIES LTD-2023R1-382165

PATIENT
  Sex: Male

DRUGS (3)
  1. SULINDAC [Suspect]
     Active Substance: SULINDAC
     Indication: Chemotherapy
     Dosage: 4 MILLIGRAM/KILOGRAM, DAILY
     Route: 065
  2. ETOPOSIDE [Suspect]
     Active Substance: ETOPOSIDE
     Indication: Chemotherapy
     Dosage: 50 MILLIGRAM/SQ. METER, DAILY, DAYS 1-21
     Route: 048
  3. CYCLOPHOSPHAMIDE [Suspect]
     Active Substance: CYCLOPHOSPHAMIDE
     Indication: Chemotherapy
     Dosage: 75 MILLIGRAM/SQ. METER, DAILY, DAYS 22-41
     Route: 048

REACTIONS (1)
  - Neoplasm progression [Unknown]
